FAERS Safety Report 4716881-8 (Version None)
Quarter: 2005Q3

REPORT INFORMATION
  Report Type: 
  Country: None (occurrence: None)
  Receive Date: 20050714
  Receipt Date: 20050706
  Transmission Date: 20060218
  Serious: Yes (Hospitalization)
  Sender: FDA-Public Use
  Company Number: 028-20785-05070117

PATIENT
  Age: 60 Year
  Sex: Male

DRUGS (7)
  1. THALOMID [Suspect]
     Indication: MULTIPLE MYELOMA
     Dosage: SEE IMAGE
     Route: 048
     Dates: start: 20050301, end: 20050401
  2. THALOMID [Suspect]
     Indication: MULTIPLE MYELOMA
     Dosage: SEE IMAGE
     Route: 048
     Dates: start: 20050401, end: 20050424
  3. THALOMID [Suspect]
     Indication: MULTIPLE MYELOMA
     Dosage: SEE IMAGE
     Route: 048
     Dates: start: 20050630
  4. RANITIDINE [Concomitant]
  5. HYDROMORPHONE HCL [Concomitant]
  6. MORPHINE SR (MORPHINE) [Concomitant]
  7. PAMIDRONATE DISODIUM [Concomitant]

REACTIONS (3)
  - BLADDER DIVERTICULUM [None]
  - ENTEROVESICAL FISTULA [None]
  - LARGE INTESTINE PERFORATION [None]
